FAERS Safety Report 16475215 (Version 1)
Quarter: 2019Q2

REPORT INFORMATION
  Report Type: Report from Study
  Country: US (occurrence: US)
  Receive Date: 20190625
  Receipt Date: 20190625
  Transmission Date: 20190711
  Serious: Yes (Hospitalization)
  Sender: FDA-Public Use
  Company Number: US-GILEAD-2019-0415030

PATIENT
  Sex: Male

DRUGS (25)
  1. DOCUSATE [Concomitant]
     Active Substance: DOCUSATE
  2. LOVAZA [Concomitant]
     Active Substance: OMEGA-3-ACID ETHYL ESTERS
  3. MAG OXIDE [Concomitant]
     Active Substance: MAGNESIUM OXIDE
  4. CALCIUM 600 + D [Concomitant]
     Active Substance: CALCIUM\VITAMIN D
  5. MELATONIN [Concomitant]
     Active Substance: MELATONIN
  6. STERILE WATER [Concomitant]
     Active Substance: WATER
  7. MYCOPHENOLATE [Concomitant]
     Active Substance: MYCOPHENOLIC ACID
  8. VITAMIN B12 [Concomitant]
     Active Substance: CYANOCOBALAMIN
  9. AZITHROMYCIN ANHYDROUS. [Concomitant]
     Active Substance: AZITHROMYCIN ANHYDROUS
  10. BIOTIN [Concomitant]
     Active Substance: BIOTIN
  11. CRESTOR [Concomitant]
     Active Substance: ROSUVASTATIN CALCIUM
  12. VALCYTE [Concomitant]
     Active Substance: VALGANCICLOVIR HYDROCHLORIDE
  13. COLISTIMETHATE SODIUM. [Concomitant]
     Active Substance: COLISTIMETHATE SODIUM
  14. NOVOLOG [Concomitant]
     Active Substance: INSULIN ASPART
  15. AZTREONAM LYSINE [Suspect]
     Active Substance: AZTREONAM LYSINE
     Indication: CYSTIC FIBROSIS
     Dosage: 75 MG, TID, ALTERNATE WITH COLISTIN
     Route: 055
     Dates: start: 20180515
  16. CARVEDILOL. [Concomitant]
     Active Substance: CARVEDILOL
  17. KALYDECO [Concomitant]
     Active Substance: IVACAFTOR
  18. NOXAFIL [Concomitant]
     Active Substance: POSACONAZOLE
  19. OMEPRAZOLE. [Concomitant]
     Active Substance: OMEPRAZOLE
  20. PREDNISONE. [Concomitant]
     Active Substance: PREDNISONE
  21. PROAIR [FLUTICASONE PROPIONATE] [Concomitant]
     Active Substance: FLUTICASONE PROPIONATE
  22. VITAMIN D NOS [Concomitant]
     Active Substance: VITAMIN D NOS
  23. BACTRIM [Concomitant]
     Active Substance: SULFAMETHOXAZOLE\TRIMETHOPRIM
  24. LANTUS [Concomitant]
     Active Substance: INSULIN GLARGINE
  25. ZENPEP [Concomitant]
     Active Substance: PANCRELIPASE AMYLASE\PANCRELIPASE LIPASE\PANCRELIPASE PROTEASE

REACTIONS (1)
  - Neoplasm [Unknown]
